FAERS Safety Report 24150999 (Version 1)
Quarter: 2024Q3

REPORT INFORMATION
  Report Type: Spontaneous
  Country: FR (occurrence: FR)
  Receive Date: 20240730
  Receipt Date: 20240730
  Transmission Date: 20241016
  Serious: Yes (Hospitalization)
  Sender: RANBAXY
  Company Number: FR-SUN PHARMACEUTICAL INDUSTRIES LTD-2024RR-459284

PATIENT
  Age: 81 Year
  Sex: Male
  Weight: 78 kg

DRUGS (3)
  1. OXALIPLATIN [Suspect]
     Active Substance: OXALIPLATIN
     Indication: Oesophageal adenocarcinoma
     Dosage: 85 MILLIGRAM/SQ. METER, 1DOSE/2 WEEKS
     Route: 040
     Dates: start: 20240214, end: 20240423
  2. FLUOROURACIL [Suspect]
     Active Substance: FLUOROURACIL
     Indication: Oesophageal adenocarcinoma
     Dosage: 2400 MILLIGRAM/SQ. METER, 1DOSE/2 WEEKS
     Route: 040
     Dates: start: 20240214, end: 20240423
  3. OPDIVO [Concomitant]
     Active Substance: NIVOLUMAB
     Indication: Oesophageal adenocarcinoma
     Dosage: 240 MILLIGRAM, 1DOSE/2 WEEKS
     Route: 040
     Dates: start: 20240214, end: 20240312

REACTIONS (1)
  - Rash maculo-papular [Recovering/Resolving]

NARRATIVE: CASE EVENT DATE: 20240423
